FAERS Safety Report 6607544-2 (Version None)
Quarter: 2010Q1

REPORT INFORMATION
  Report Type: 
  Country: None (occurrence: None)
  Receive Date: 20100301
  Receipt Date: 20100219
  Transmission Date: 20100710
  Serious: Yes (Hospitalization)
  Sender: FDA-Public Use
  Company Number: PHHY2009BR42270

PATIENT
  Age: 78 Year
  Sex: Female
  Weight: 55 kg

DRUGS (6)
  1. DIOVAN [Suspect]
     Indication: ARRHYTHMIA
     Dosage: DAILY 1 TABLET OF VALSARTAN/HYDROCHLOROTHIAZIDE + 1 TABLET OF AMLODIPINE
     Route: 048
  2. SELOZOK [Concomitant]
     Indication: ARRHYTHMIA
     Dosage: 1 TABLET/DAY
     Route: 048
  3. VICOG [Concomitant]
     Dosage: 1 TABLET TWICE DAILY
     Route: 048
  4. OS-CAL D [Concomitant]
     Indication: MINERAL SUPPLEMENTATION
     Dosage: 1 TABLET DAILY
     Route: 048
  5. ACETATO DE TOCOFEROL [Concomitant]
     Dosage: 1 TABLET TWICE DAILY
     Route: 048
  6. SULFATO DE GLUCOSAMINA [Concomitant]
     Indication: ARTHRITIS
     Dosage: 1 SACHET EVERY OTHER DAY
     Route: 048

REACTIONS (2)
  - THYROID NEOPLASM [None]
  - THYROID NODULE REMOVAL [None]
